FAERS Safety Report 5994279-2 (Version None)
Quarter: 2008Q4

REPORT INFORMATION
  Report Type: 
  Country: None (occurrence: None)
  Receive Date: 20081212
  Receipt Date: 20080905
  Transmission Date: 20090506
  Serious: No
  Sender: FDA-Public Use
  Company Number: US-ABBOTT-08P-163-0474777-00

PATIENT
  Sex: Female
  Weight: 72.64 kg

DRUGS (2)
  1. HUMIRA [Suspect]
     Indication: PSORIASIS
     Route: 050
     Dates: start: 20080701, end: 20080801
  2. BETAMETHASONE DIPROPIONATE [Concomitant]
     Indication: PSORIASIS
     Dosage: % BID
     Route: 061
     Dates: start: 20080904

REACTIONS (2)
  - ALOPECIA [None]
  - DRUG INEFFECTIVE [None]
